FAERS Safety Report 9795050 (Version 2)
Quarter: 2014Q1

REPORT INFORMATION
  Report Type: Spontaneous
  Country: IT (occurrence: IT)
  Receive Date: 20140102
  Receipt Date: 20140221
  Transmission Date: 20141002
  Serious: Yes (Hospitalization)
  Sender: FDA-Public Use
  Company Number: IT-ROCHE-1328063

PATIENT
  Age: 62 Year
  Sex: Female

DRUGS (6)
  1. COPEGUS [Suspect]
     Indication: HEPATITIS C
     Route: 065
     Dates: start: 20130401, end: 20130901
  2. PEGINTRON [Suspect]
     Indication: HEPATITIS C
     Route: 065
     Dates: start: 20130401, end: 20130901
  3. OMEPRAZOLO [Concomitant]
     Route: 065
  4. ALLOPURINOL [Concomitant]
     Route: 065
  5. DIBASE [Concomitant]
  6. GAVISCON (ITALY) [Concomitant]

REACTIONS (1)
  - Pancytopenia [Not Recovered/Not Resolved]
